FAERS Safety Report 21821060 (Version 2)
Quarter: 2023Q1

REPORT INFORMATION
  Report Type: Spontaneous
  Country: US (occurrence: US)
  Receive Date: 20230105
  Receipt Date: 20230110
  Transmission Date: 20230418
  Serious: No
  Sender: FDA-Public Use
  Company Number: US-LUPIN PHARMACEUTICALS INC.-2022-14702

PATIENT

DRUGS (1)
  1. ALBUTEROL SULFATE [Suspect]
     Active Substance: ALBUTEROL SULFATE
     Indication: Wheezing
     Dosage: UNK UNK, PRN 2 PUFFS RIGHT BEFORE SLEEP AS NEEDED
     Dates: start: 20221209

REACTIONS (3)
  - Off label use [Unknown]
  - Device delivery system issue [Unknown]
  - Drug dose omission by device [Unknown]
